FAERS Safety Report 24379109 (Version 1)
Quarter: 2024Q3

REPORT INFORMATION
  Report Type: Spontaneous
  Country: PL (occurrence: PL)
  Receive Date: 20240930
  Receipt Date: 20240930
  Transmission Date: 20241016
  Serious: Yes (Other)
  Sender: MYLAN
  Company Number: None

PATIENT
  Sex: Male

DRUGS (1)
  1. OLANZAPINE [Suspect]
     Active Substance: OLANZAPINE
     Indication: Product used for unknown indication
     Dosage: UNK
     Route: 065
     Dates: start: 20190710

REACTIONS (9)
  - Feeling abnormal [Unknown]
  - Cerebrovascular accident [Unknown]
  - Hunger [Unknown]
  - Hair colour changes [Unknown]
  - Myocardial infarction [Unknown]
  - Tooth disorder [Unknown]
  - Cardiac disorder [Unknown]
  - Headache [Unknown]
  - Erectile dysfunction [Unknown]
